FAERS Safety Report 9756092 (Version 3)
Quarter: 2014Q1

REPORT INFORMATION
  Report Type: Report from Study
  Country: DE (occurrence: DE)
  Receive Date: 20131213
  Receipt Date: 20140127
  Transmission Date: 20141002
  Serious: Yes (Hospitalization)
  Sender: FDA-Public Use
  Company Number: DE-GLAXOSMITHKLINE-B0952473A

PATIENT
  Age: 77 Year
  Sex: Female
  Weight: 58.2 kg

DRUGS (1)
  1. LAPATINIB [Suspect]
     Indication: BREAST CANCER
     Dosage: 1000MG PER DAY
     Dates: start: 20131106, end: 20131208

REACTIONS (1)
  - Abdominal pain [Recovered/Resolved with Sequelae]
